FAERS Safety Report 5312676-5 (Version None)
Quarter: 2007Q2

REPORT INFORMATION
  Report Type: 
  Country: None (occurrence: None)
  Receive Date: 20070430
  Receipt Date: 20070215
  Transmission Date: 20071010
  Serious: No
  Sender: FDA-Public Use
  Company Number: 2007UW03041

PATIENT
  Sex: Male

DRUGS (1)
  1. NEXIUM [Suspect]
     Indication: DYSPEPSIA
     Dosage: 20-40 MG
     Route: 048
     Dates: start: 20050101

REACTIONS (2)
  - ARTHRALGIA [None]
  - SPINAL FRACTURE [None]
